FAERS Safety Report 21740245 (Version 1)
Quarter: 2022Q4

REPORT INFORMATION
  Report Type: Spontaneous
  Country: US (occurrence: US)
  Receive Date: 20221216
  Receipt Date: 20221216
  Transmission Date: 20230113
  Serious: No
  Sender: FDA-Public Use
  Company Number: US-002147023-NVSC2022US291733

PATIENT
  Age: 66 Year
  Sex: Male

DRUGS (2)
  1. MEKINIST [Suspect]
     Active Substance: TRAMETINIB DIMETHYL SULFOXIDE
     Indication: Malignant melanoma
     Dosage: 1 DOSAGE FORM, QD
     Route: 048
     Dates: start: 20221029
  2. TAFINLAR [Suspect]
     Active Substance: DABRAFENIB MESYLATE
     Indication: Malignant melanoma
     Dosage: 2 DOSAGE FORM, BID
     Route: 065
     Dates: start: 20221029

REACTIONS (3)
  - Asthenia [Recovering/Resolving]
  - Fatigue [Recovering/Resolving]
  - Mobility decreased [Recovering/Resolving]
